FAERS Safety Report 9999603 (Version 1)
Quarter: 2014Q1

REPORT INFORMATION
  Report Type: Spontaneous
  Country: US (occurrence: None)
  Receive Date: 20140311
  Receipt Date: 20140311
  Transmission Date: 20141002
  Serious: No
  Sender: FDA-Public Use
  Company Number: None

PATIENT
  Age: 40 Year
  Sex: Female
  Weight: 78.2 kg

DRUGS (6)
  1. DULOXETINE [Suspect]
     Indication: FIBROMYALGIA
     Dosage: MID JANUARY TO PRESENT?60 MG ?DAILY?PO?
     Route: 048
  2. GABAPENTIN [Concomitant]
  3. IBUPROFEN [Concomitant]
  4. LORATADINE [Concomitant]
  5. NAPROXEN SODIUM [Concomitant]
  6. PROTONIX [Concomitant]

REACTIONS (4)
  - Weight increased [None]
  - Fatigue [None]
  - Disturbance in attention [None]
  - Depressed level of consciousness [None]
